FAERS Safety Report 9014305 (Version 2)
Quarter: 2013Q4

REPORT INFORMATION
  Report Type: Spontaneous
  Country: US (occurrence: US)
  Receive Date: 20130115
  Receipt Date: 20131022
  Transmission Date: 20140711
  Serious: Yes (Hospitalization, Other)
  Sender: FDA-Public Use
  Company Number: US-BAYER-2013-002302

PATIENT
  Age: 26 Year
  Sex: Female
  Weight: 61.22 kg

DRUGS (5)
  1. MIRENA [Suspect]
     Indication: CONTRACEPTION
     Dosage: 20 MCG/24HR, CONT
     Route: 015
     Dates: start: 20060126, end: 20100107
  2. DEPAKOTE ER [Concomitant]
     Dosage: 1250 MG, AT NIGHT
     Route: 048
  3. LEXAPRO [Concomitant]
     Dosage: 20 MG, AT NIGHT
     Route: 048
  4. ABILIFY [Concomitant]
     Dosage: 2 MG, DAILY
     Route: 048
  5. KLONOPIN [Concomitant]
     Dosage: 1 MG, TID
     Route: 048

REACTIONS (8)
  - Uterine perforation [None]
  - Abdominal pain [None]
  - Vomiting [None]
  - Pyelonephritis acute [None]
  - Menorrhagia [None]
  - Dysmenorrhoea [None]
  - Premature separation of placenta [None]
  - Uterine fibrosis [None]
